FAERS Safety Report 6079957-1 (Version None)
Quarter: 2009Q1

REPORT INFORMATION
  Report Type: 
  Country: None (occurrence: None)
  Receive Date: 20090217
  Receipt Date: 20090203
  Transmission Date: 20090719
  Serious: Yes (Death, Hospitalization, Other)
  Sender: FDA-Public Use
  Company Number: SK-PFIZER INC-2008084079

PATIENT

DRUGS (3)
  1. CLINDAMYCIN HYDROCHLORIDE [Suspect]
     Dates: start: 20060201
  2. CIPROFLOXACIN [Suspect]
     Dates: start: 20060201
  3. AMOXICILLIN + CLAVULANATE POTASSIUM [Suspect]
     Dates: start: 20060201

REACTIONS (10)
  - BRONCHOPNEUMONIA [None]
  - DISSEMINATED INTRAVASCULAR COAGULATION [None]
  - EMPYEMA [None]
  - MULTI-ORGAN FAILURE [None]
  - PURULENCE [None]
  - PURULENT PERICARDITIS [None]
  - PYOTHORAX [None]
  - RESPIRATORY FAILURE [None]
  - SEPTIC SHOCK [None]
  - SPLEEN DISORDER [None]
